FAERS Safety Report 11497925 (Version 1)
Quarter: 2015Q3

REPORT INFORMATION
  Report Type: Report from Study
  Country: DE (occurrence: DE)
  Receive Date: 20150911
  Receipt Date: 20150911
  Transmission Date: 20151125
  Serious: Yes (Death, Hospitalization)
  Sender: FDA-Public Use
  Company Number: DE-TEVA-2010002867

PATIENT
  Age: 79 Year
  Sex: Male
  Weight: 71 kg

DRUGS (6)
  1. BENDAMUSTINE HCL [Suspect]
     Active Substance: BENDAMUSTINE HYDROCHLORIDE
     Indication: CHRONIC LYMPHOCYTIC LEUKAEMIA
     Dosage: 79 MILLIGRAM DAILY;
     Route: 042
     Dates: start: 20090928, end: 20091029
  2. AMOXICILLIN. [Concomitant]
     Active Substance: AMOXICILLIN
     Indication: INFECTION
     Dates: start: 20091109
  3. RITUXIMAB [Suspect]
     Active Substance: RITUXIMAB
     Dosage: 656 MILLIGRAM DAILY;
     Route: 042
     Dates: start: 20090902, end: 20091029
  4. RITUXIMAB [Suspect]
     Active Substance: RITUXIMAB
     Indication: CHRONIC LYMPHOCYTIC LEUKAEMIA
     Dosage: 656 MILLIGRAM DAILY;
     Dates: start: 20090930, end: 20091102
  5. SPIRO COMP [Concomitant]
     Indication: OEDEMA PERIPHERAL
     Dosage: 50/2 MG
     Dates: start: 20091109
  6. LISINOPRIL COMP [Concomitant]
     Indication: HYPERTENSION

REACTIONS (5)
  - Pneumonia [Fatal]
  - Pulmonary embolism [Fatal]
  - Thrombosis [Fatal]
  - Sepsis [Fatal]
  - Pneumonia [Fatal]

NARRATIVE: CASE EVENT DATE: 20091111
